FAERS Safety Report 4710522-1 (Version None)
Quarter: 2005Q3

REPORT INFORMATION
  Report Type: 
  Country: None (occurrence: None)
  Receive Date: 20050707
  Receipt Date: 20050627
  Transmission Date: 20060218
  Serious: Yes (Hospitalization)
  Sender: FDA-Public Use
  Company Number: 2005092073

PATIENT
  Age: 57 Year
  Sex: Female

DRUGS (3)
  1. CABERGOLINE [Suspect]
     Indication: PARKINSON'S DISEASE
     Dosage: 2 MG (2 MG, DAILY), ORAL
     Route: 048
     Dates: start: 20020513
  2. MANTADAN (AMANTADINE HYDROCHLORIDE) [Concomitant]
  3. SINEMET [Concomitant]

REACTIONS (3)
  - AORTIC VALVE DISEASE [None]
  - CARDIAC FAILURE [None]
  - MITRAL VALVE DISEASE [None]
